FAERS Safety Report 22203718 (Version 1)
Quarter: 2023Q2

REPORT INFORMATION
  Report Type: Spontaneous
  Country: US (occurrence: US)
  Receive Date: 20230412
  Receipt Date: 20230412
  Transmission Date: 20230721
  Serious: No
  Sender: FDA-Public Use
  Company Number: US-TAKEDA-2023TUS036346

PATIENT
  Age: 64 Year
  Sex: Female

DRUGS (1)
  1. DEXILANT [Suspect]
     Active Substance: DEXLANSOPRAZOLE
     Indication: Gastric disorder
     Dosage: 60 MILLIGRAM, QD
     Route: 048
     Dates: end: 20230406

REACTIONS (3)
  - Product use issue [Unknown]
  - Product use in unapproved indication [Unknown]
  - No adverse event [Unknown]

NARRATIVE: CASE EVENT DATE: 20230406
